FAERS Safety Report 8979194 (Version 1)
Quarter: 2012Q4

REPORT INFORMATION
  Report Type: 
  Country: US (occurrence: US)
  Receive Date: 20121221
  Receipt Date: 20121221
  Transmission Date: 20130627
  Serious: No
  Sender: FDA-Public Use
  Company Number: US-PFIZER INC-HQWYE194608JAN04

PATIENT
  Age: 82 Year
  Sex: Female

DRUGS (8)
  1. ADVIL [Suspect]
     Indication: ARTHRITIS
     Dosage: 1 capsule every 6 hours
     Route: 048
  2. ADVIL [Suspect]
     Indication: SWELLING OF FEET
     Dosage: UNK, two times a day as needed
  3. ADVIL [Suspect]
     Indication: PAIN IN FOOT
  4. TYLENOL [Suspect]
     Indication: PAIN
     Dosage: UNK, three times a day as needed
     Dates: start: 201212
  5. LEVAQUIN [Suspect]
     Indication: PAIN IN TOE
     Dosage: UNK
  6. METOPROLOL SUCCINATE [Concomitant]
     Indication: BLOOD PRESSURE HIGH
     Dosage: 25 mg, daily
  7. AMLODIPINE BESILATE [Concomitant]
     Indication: BLOOD PRESSURE HIGH
     Dosage: UNK, daily
  8. ZOLPIDEM [Concomitant]
     Indication: SLEEP PROBLEM
     Dosage: UNK

REACTIONS (1)
  - Drug ineffective [Unknown]
